FAERS Safety Report 5564245-X (Version None)
Quarter: 2007Q4

REPORT INFORMATION
  Report Type: 
  Country: None (occurrence: None)
  Receive Date: 20071212
  Receipt Date: 20071126
  Transmission Date: 20080405
  Serious: Yes (Hospitalization, Disabling)
  Sender: FDA-Public Use
  Company Number: TPG2007A00686

PATIENT
  Age: 79 Year
  Sex: Female

DRUGS (8)
  1. ACTOS [Suspect]
     Indication: TYPE 2 DIABETES MELLITUS
     Dosage: 30 MG (30 MG, 1 -0 -0 TABLET PER  DAY) PER ORAL
     Route: 048
     Dates: start: 20061031
  2. METFORMIN (METFORMIN ) [Concomitant]
  3. ACETYLSALICYLIC ACID SRT [Concomitant]
  4. L-THYROX (LEVOTHYROXINE) [Concomitant]
  5. RAMIPRIL [Concomitant]
  6. METOPROLOL SUCCINATE [Concomitant]
  7. HCT (HYDROCHLOROTHIAZIDE) [Concomitant]
  8. SIMVA (SIMVASTATIN) [Concomitant]

REACTIONS (3)
  - HUMERUS FRACTURE [None]
  - HYPOGLYCAEMIA [None]
  - PATHOLOGICAL FRACTURE [None]
